FAERS Safety Report 11389097 (Version 3)
Quarter: 2015Q3

REPORT INFORMATION
  Report Type: Report from Study
  Country: PL (occurrence: PL)
  Receive Date: 20150817
  Receipt Date: 20150824
  Transmission Date: 20151125
  Serious: Yes (Death, Life-Threatening, Hospitalization, Disabling, Other)
  Sender: FDA-Public Use
  Company Number: PL-SEATTLE GENETICS-2015SGN01219

PATIENT

DRUGS (5)
  1. VINBLASTINE [Suspect]
     Active Substance: VINBLASTINE
     Indication: HODGKIN^S DISEASE
     Dosage: 11.58 MG, UNK
     Route: 042
     Dates: start: 20150514, end: 20150722
  2. DACARBAZINE. [Suspect]
     Active Substance: DACARBAZINE
     Indication: HODGKIN^S DISEASE
     Dosage: 723.75 MG, UNK
     Route: 042
     Dates: start: 20150514, end: 20150722
  3. GRANULOCYTE COLONY STIMULATING FACTOR [Concomitant]
     Active Substance: GRANULOCYTE COLONY-STIMULATING FACTOR NOS
     Indication: PROPHYLAXIS
     Dosage: UNK
  4. DOXORUBICIN [Suspect]
     Active Substance: DOXORUBICIN
     Indication: HODGKIN^S DISEASE
     Dosage: 48.25 MG, UNK
     Route: 042
     Dates: start: 20150514, end: 20150722
  5. BRENTUXIMAB VEDOTIN [Suspect]
     Active Substance: BRENTUXIMAB VEDOTIN
     Indication: HODGKIN^S DISEASE
     Dosage: 103.2 MG, UNK
     Route: 042
     Dates: start: 20150514, end: 20150722

REACTIONS (5)
  - Neutropenia [Recovered/Resolved]
  - Polyneuropathy [Fatal]
  - Febrile neutropenia [Not Recovered/Not Resolved]
  - Encephalopathy [Fatal]
  - Respiratory failure [Fatal]

NARRATIVE: CASE EVENT DATE: 20150716
